FAERS Safety Report 19453523 (Version 1)
Quarter: 2021Q2

REPORT INFORMATION
  Report Type: Spontaneous
  Country: AT (occurrence: AT)
  Receive Date: 20210623
  Receipt Date: 20210623
  Transmission Date: 20210717
  Serious: Yes (Other)
  Sender: FDA-Public Use
  Company Number: AT-PFIZER INC-2021697818

PATIENT
  Age: 19 Year
  Sex: Female

DRUGS (5)
  1. PARACETAMOL ACCORD [Concomitant]
     Active Substance: ACETAMINOPHEN
     Dosage: UNK
  2. NOVALGIN [CAFFEINE;PARACETAMOL;PROPYPHENAZONE] [Concomitant]
     Active Substance: ACETAMINOPHEN\CAFFEINE\PROPYPHENAZONE
     Dosage: UNK
  3. DALACIN C [Suspect]
     Active Substance: CLINDAMYCIN
     Dosage: UNK
     Route: 048
     Dates: start: 20201010, end: 20201017
  4. PENICILLIN G SODIUM SANDOZ [Concomitant]
     Dosage: UNK
     Dates: start: 20201008, end: 20201010
  5. DICLOBENE [Concomitant]
     Active Substance: DICLOFENAC SODIUM
     Dosage: UNK

REACTIONS (2)
  - Rash [Recovered/Resolved]
  - Type IV hypersensitivity reaction [Recovered/Resolved]

NARRATIVE: CASE EVENT DATE: 20201016
